FAERS Safety Report 11143492 (Version 1)
Quarter: 2015Q2

REPORT INFORMATION
  Report Type: Spontaneous
  Country: None (occurrence: None)
  Receive Date: 20150527
  Receipt Date: 20150527
  Transmission Date: 20150821
  Serious: Yes (Hospitalization)
  Sender: FDA-Public Use
  Company Number: None

PATIENT
  Age: 60 Year
  Sex: Male
  Weight: 77 kg

DRUGS (4)
  1. LANTUS [Concomitant]
     Active Substance: INSULIN GLARGINE
  2. TIBET BABAO [Suspect]
     Active Substance: HERBALS
  3. AMLODIPINE [Concomitant]
     Active Substance: AMLODIPINE BESYLATE
  4. ASPIRIN. [Concomitant]
     Active Substance: ASPIRIN

REACTIONS (7)
  - Hypomania [None]
  - Sleep disorder [None]
  - Nausea [None]
  - Rhabdomyolysis [None]
  - Vomiting [None]
  - Psychomotor hyperactivity [None]
  - Acute kidney injury [None]

NARRATIVE: CASE EVENT DATE: 20150516
